FAERS Safety Report 26115179 (Version 2)
Quarter: 2025Q4

REPORT INFORMATION
  Report Type: Report from Study
  Country: MX (occurrence: MX)
  Receive Date: 20251203
  Receipt Date: 20251216
  Transmission Date: 20260118
  Serious: No
  Sender: CSL BEHRING
  Company Number: MX-BEH-2025227673

PATIENT
  Age: 63 Year
  Sex: Female

DRUGS (1)
  1. HIZENTRA [Suspect]
     Active Substance: HUMAN IMMUNOGLOBULIN G
     Indication: Secondary immunodeficiency
     Dosage: 4 G, QD (FOR 3 DAYS)
     Route: 058

REACTIONS (3)
  - Hodgkin^s disease [Fatal]
  - Acute respiratory failure [Fatal]
  - Haemothorax [Fatal]
